FAERS Safety Report 14605475 (Version 1)
Quarter: 2018Q1

REPORT INFORMATION
  Report Type: Other
  Country: US (occurrence: US)
  Receive Date: 20180306
  Receipt Date: 20180306
  Transmission Date: 20180509
  Serious: No
  Sender: FDA-Public Use
  Company Number: US-INTERCEPT-PMOCA2017001620

PATIENT

DRUGS (2)
  1. OCALIVA [Suspect]
     Active Substance: OBETICHOLIC ACID
     Indication: PRIMARY BILIARY CHOLANGITIS
     Dosage: 5 MG, QD
     Route: 048
     Dates: start: 20170712
  2. OCALIVA [Suspect]
     Active Substance: OBETICHOLIC ACID
     Dosage: 5 MG, QD
     Route: 048
     Dates: start: 20170705

REACTIONS (9)
  - Foot fracture [Unknown]
  - Rotator cuff syndrome [Unknown]
  - Patella fracture [Unknown]
  - Pruritus [Unknown]
  - Concussion [Unknown]
  - Fatigue [Unknown]
  - Fall [Unknown]
  - Hunger [Unknown]
  - Constipation [Unknown]

NARRATIVE: CASE EVENT DATE: 2017
